FAERS Safety Report 13627815 (Version 1)
Quarter: 2017Q2

REPORT INFORMATION
  Report Type: Spontaneous
  Country: US (occurrence: US)
  Receive Date: 20170531
  Receipt Date: 20170531
  Transmission Date: 20170830
  Serious: Yes (Hospitalization)
  Sender: FDA-Public Use
  Company Number: US-ASTELLAS-1604347

PATIENT
  Sex: Female

DRUGS (15)
  1. ASPIRIN. [Concomitant]
     Active Substance: ASPIRIN
  2. NORVASC [Concomitant]
     Active Substance: AMLODIPINE BESYLATE
  3. BUDESONIDE. [Concomitant]
     Active Substance: BUDESONIDE
  4. TARCEVA [Suspect]
     Active Substance: ERLOTINIB HYDROCHLORIDE
     Indication: LUNG NEOPLASM MALIGNANT
     Dosage: THERAPY STOPPED AND RESTARTED ON UNKNOWN DATES
     Route: 048
     Dates: start: 20150430
  5. PREDNISONE. [Concomitant]
     Active Substance: PREDNISONE
  6. NEURONTIN [Concomitant]
     Active Substance: GABAPENTIN
  7. AMLODIPINE [Concomitant]
     Active Substance: AMLODIPINE BESYLATE
  8. GABAPENTIN. [Concomitant]
     Active Substance: GABAPENTIN
  9. HYDRALAZINE [Concomitant]
     Active Substance: HYDRALAZINE HYDROCHLORIDE
  10. PRILOSEC [Concomitant]
     Active Substance: OMEPRAZOLE MAGNESIUM
  11. SPIRIVA [Concomitant]
     Active Substance: TIOTROPIUM BROMIDE MONOHYDRATE
  12. HYDRALAZINE [Concomitant]
     Active Substance: HYDRALAZINE HYDROCHLORIDE
  13. ALBUTEROL. [Concomitant]
     Active Substance: ALBUTEROL
  14. ISONIAZID. [Concomitant]
     Active Substance: ISONIAZID
  15. AMBIEN [Concomitant]
     Active Substance: ZOLPIDEM TARTRATE

REACTIONS (7)
  - Rash [Unknown]
  - Alopecia [Unknown]
  - Infection [Unknown]
  - Drug ineffective [Unknown]
  - Fungal infection [Unknown]
  - Nausea [Unknown]
  - Lung infection [Unknown]
